FAERS Safety Report 18904719 (Version 4)
Quarter: 2021Q1

REPORT INFORMATION
  Report Type: Spontaneous
  Country: GB (occurrence: GB)
  Receive Date: 20210217
  Receipt Date: 20210319
  Transmission Date: 20210420
  Serious: Yes (Other)
  Sender: FDA-Public Use
  Company Number: GB-TEVA-2021-GB-1880157

PATIENT
  Sex: Female

DRUGS (1)
  1. SONDATE XL [Suspect]
     Active Substance: QUETIAPINE FUMARATE
     Indication: SCHIZOPHRENIA
     Dosage: 300 MG; THERAPY STARTED SINCE SHE WAS 22.
     Route: 065

REACTIONS (27)
  - Suicidal behaviour [Unknown]
  - Suspected counterfeit product [Unknown]
  - Dyspnoea [Unknown]
  - Poisoning [Unknown]
  - Pain [Unknown]
  - Insomnia [Unknown]
  - Skin depigmentation [Unknown]
  - Somnolence [Unknown]
  - Malaise [Unknown]
  - Hallucination [Recovering/Resolving]
  - Emotional disorder [Unknown]
  - Rash [Unknown]
  - Nail disorder [Unknown]
  - Drug ineffective [Unknown]
  - Feeling abnormal [Unknown]
  - Alopecia [Unknown]
  - Fear of death [Unknown]
  - Product label issue [Unknown]
  - Fatigue [Unknown]
  - Blood urine present [Unknown]
  - Airway burns [Unknown]
  - Illness [Unknown]
  - Visual impairment [Unknown]
  - Secretion discharge [Unknown]
  - Migraine [Unknown]
  - Product odour abnormal [Unknown]
  - Skin discolouration [Unknown]
